FAERS Safety Report 7528257-9 (Version None)
Quarter: 2011Q2

REPORT INFORMATION
  Report Type: 
  Country: None (occurrence: None)
  Receive Date: 20110607
  Receipt Date: 20100505
  Transmission Date: 20111010
  Serious: No
  Sender: FDA-Public Use
  Company Number: US-ASTRAZENECA-2010SE15838

PATIENT
  Age: 53 Year
  Sex: Female
  Weight: 72.6 kg

DRUGS (3)
  1. HERBS [Concomitant]
  2. VITAMINS [Concomitant]
  3. PRILOSEC [Suspect]
     Indication: GASTROOESOPHAGEAL REFLUX DISEASE
     Route: 048
     Dates: start: 20100329, end: 20100401

REACTIONS (5)
  - HYPERSENSITIVITY [None]
  - DRY SKIN [None]
  - RASH [None]
  - ERYTHEMA [None]
  - MALAISE [None]
